FAERS Safety Report 20751012 (Version 2)
Quarter: 2022Q2

REPORT INFORMATION
  Report Type: Spontaneous
  Country: JP (occurrence: JP)
  Receive Date: 20220426
  Receipt Date: 20220428
  Transmission Date: 20220721
  Serious: Yes (Life-Threatening)
  Sender: FDA-Public Use
  Company Number: JP-CHUGAI-2022007433

PATIENT
  Age: 72 Year
  Sex: Female

DRUGS (8)
  1. TECENTRIQ [Suspect]
     Active Substance: ATEZOLIZUMAB
     Indication: Lung adenocarcinoma
     Dosage: 1200 MILLIGRAM, ONCE/3WEEKS
     Route: 041
     Dates: start: 20211020, end: 20220202
  2. AVASTIN [Suspect]
     Active Substance: BEVACIZUMAB
     Indication: Lung adenocarcinoma
     Dosage: 700 MILLIGRAM, ONCE/3WEEKS
     Route: 041
     Dates: start: 20211020, end: 20220222
  3. CARBOPLATIN [Concomitant]
     Active Substance: CARBOPLATIN
     Indication: Lung adenocarcinoma
     Dosage: 380 MILLIGRAM, ONCE/3WEEKS
     Route: 041
     Dates: start: 20211020, end: 20211222
  4. PACLITAXEL [Concomitant]
     Active Substance: PACLITAXEL
     Indication: Lung adenocarcinoma
     Dosage: 280 MILLIGRAM, ONCE/3WEEKS
     Route: 041
     Dates: start: 20211020, end: 20211222
  5. DULOXETINE HYDROCHLORIDE [Concomitant]
     Active Substance: DULOXETINE HYDROCHLORIDE
     Dosage: UNK
     Route: 048
     Dates: start: 20220202
  6. LOXOPROFEN SODIUM [Concomitant]
     Active Substance: LOXOPROFEN SODIUM
     Dosage: UNK
     Route: 048
     Dates: start: 20220202
  7. NEXIUM [Concomitant]
     Active Substance: ESOMEPRAZOLE MAGNESIUM
     Dosage: UNK
     Route: 048
     Dates: start: 20220202
  8. PREDNISOLONE [Concomitant]
     Active Substance: PREDNISOLONE
     Dates: start: 20220211

REACTIONS (1)
  - Adrenocorticotropic hormone deficiency [Recovered/Resolved]

NARRATIVE: CASE EVENT DATE: 20220203
